FAERS Safety Report 11114913 (Version 4)
Quarter: 2015Q3

REPORT INFORMATION
  Report Type: Spontaneous
  Country: PK (occurrence: PK)
  Receive Date: 20150515
  Receipt Date: 20150709
  Transmission Date: 20151125
  Serious: Yes (Other)
  Sender: FDA-Public Use
  Company Number: IN-009507513-1505IND004617

PATIENT
  Age: 22 Year
  Sex: Female

DRUGS (1)
  1. IMPLANON [Suspect]
     Active Substance: ETONOGESTREL
     Dosage: UNK, IN THE LEFT ARM
     Dates: start: 20141117

REACTIONS (4)
  - Hypoaesthesia [Unknown]
  - Pain in extremity [Unknown]
  - Device dislocation [Not Recovered/Not Resolved]
  - Medical device complication [Not Recovered/Not Resolved]

NARRATIVE: CASE EVENT DATE: 2015
